FAERS Safety Report 4774102-4 (Version None)
Quarter: 2005Q3

REPORT INFORMATION
  Report Type: 
  Country: None (occurrence: None)
  Receive Date: 20050914
  Receipt Date: 20050401
  Transmission Date: 20060218
  Serious: Yes (Other)
  Sender: FDA-Public Use
  Company Number: 163-20785-05040144

PATIENT

DRUGS (1)
  1. THALOMID [Suspect]
     Indication: NON-HODGKIN'S LYMPHOMA
     Dosage: 200MG FOR 1-2 WEEKS, TITRATED UP BY 100MG Q1-2 WEEKS, UNTIL 800MG/DAY, QHS, ORAL
     Route: 048
     Dates: start: 20020420

REACTIONS (4)
  - EYE DISORDER [None]
  - FEBRILE NEUTROPENIA [None]
  - PLATELET COUNT DECREASED [None]
  - THROMBOSIS [None]
